FAERS Safety Report 21218298 (Version 1)
Quarter: 2022Q3

REPORT INFORMATION
  Report Type: Spontaneous
  Country: US (occurrence: US)
  Receive Date: 20220816
  Receipt Date: 20220816
  Transmission Date: 20221027
  Serious: No
  Sender: FDA-Public Use
  Company Number: US-GE HEALTHCARE-2022CSU004123

PATIENT
  Sex: Female

DRUGS (4)
  1. MYOVIEW [Suspect]
     Active Substance: TECHNETIUM TC-99M TETROFOSMIN
     Indication: Diagnostic procedure
     Dosage: 403.3 MBQ IN 0.6 ML, ONCE
     Route: 065
     Dates: start: 20220607, end: 20220607
  2. MYOVIEW [Suspect]
     Active Substance: TECHNETIUM TC-99M TETROFOSMIN
     Indication: Product used for unknown indication
  3. TECHNETIUM TC-99M [Concomitant]
     Active Substance: TECHNETIUM TC-99M
     Indication: Diagnostic procedure
     Dosage: UNK, SINGLE
     Dates: start: 20220607, end: 20220607
  4. TECHNETIUM TC-99M [Concomitant]
     Active Substance: TECHNETIUM TC-99M
     Indication: Product used for unknown indication

REACTIONS (1)
  - Hypersensitivity [Unknown]

NARRATIVE: CASE EVENT DATE: 20220607
